FAERS Safety Report 20168647 (Version 1)
Quarter: 2021Q4

REPORT INFORMATION
  Report Type: Spontaneous
  Country: US (occurrence: US)
  Receive Date: 20211210
  Receipt Date: 20211210
  Transmission Date: 20220304
  Serious: No
  Sender: FDA-Public Use
  Company Number: US-TEVA-2021-US-1979614

PATIENT
  Age: 57 Year
  Sex: Female
  Weight: 49.9 kg

DRUGS (2)
  1. DESIPRAMINE [Suspect]
     Active Substance: DESIPRAMINE
     Indication: Antidepressant therapy
     Route: 065
  2. DULOXETINE HYDROCHLORIDE [Suspect]
     Active Substance: DULOXETINE HYDROCHLORIDE
     Route: 065

REACTIONS (1)
  - Drug ineffective [Unknown]
